FAERS Safety Report 5224941-0 (Version None)
Quarter: 2007Q1

REPORT INFORMATION
  Report Type: 
  Country: None (occurrence: None)
  Receive Date: 20070126
  Receipt Date: 20070111
  Transmission Date: 20070707
  Serious: Yes (Hospitalization)
  Sender: FDA-Public Use
  Company Number: GXKR2007NO00706

PATIENT
  Age: 69 Year
  Sex: Male

DRUGS (3)
  1. METFORMIN HCL [Suspect]
     Indication: DIABETES MELLITUS NON-INSULIN-DEPENDENT
  2. LOSARTAN (NGX) (LOSARTAN) TABLET [Suspect]
     Indication: HYPERTENSION
     Dosage: 50 MG,
  3. HYDROCHLOROTHIAZIDE [Concomitant]

REACTIONS (10)
  - ABDOMINAL PAIN [None]
  - CARDIAC ARREST [None]
  - DIARRHOEA [None]
  - HYPERVENTILATION [None]
  - LACTIC ACIDOSIS [None]
  - NEPHROLITHIASIS [None]
  - RENAL FAILURE ACUTE [None]
  - RESPIRATORY ARREST [None]
  - SHOCK [None]
  - VISUAL DISTURBANCE [None]
